FAERS Safety Report 11993357 (Version 3)
Quarter: 2023Q2

REPORT INFORMATION
  Report Type: Report from Study
  Country: TW (occurrence: TW)
  Receive Date: 20160203
  Receipt Date: 20230626
  Transmission Date: 20230722
  Serious: Yes (Hospitalization, Other)
  Sender: FDA-Public Use
  Company Number: TW-SHIRE-TW201600793

PATIENT
  Age: 9 Year
  Sex: Male

DRUGS (24)
  1. IDURSULFASE [Suspect]
     Active Substance: IDURSULFASE
     Indication: Mucopolysaccharidosis II
     Dosage: UNK UNK, 1/WEEK
     Route: 042
     Dates: start: 20080428
  2. IDURSULFASE [Suspect]
     Active Substance: IDURSULFASE
     Dosage: UNK UNK, 1/WEEK
     Route: 042
     Dates: start: 20091028
  3. IDURSULFASE [Suspect]
     Active Substance: IDURSULFASE
     Dosage: UNK UNK, 1/WEEK
     Route: 042
     Dates: start: 20100707
  4. COZAAR [Concomitant]
     Active Substance: LOSARTAN POTASSIUM
     Indication: Cardiovascular disorder
     Dosage: UNK
     Route: 042
     Dates: start: 20090311
  5. ALLEGRA [Concomitant]
     Active Substance: FEXOFENADINE HYDROCHLORIDE
     Indication: Antiallergic therapy
     Dosage: UNK
     Route: 048
     Dates: start: 20110828, end: 20110904
  6. CEFUROXIME [Concomitant]
     Active Substance: CEFUROXIME
     Indication: Anti-infective therapy
     Dosage: UNK
     Route: 048
     Dates: start: 20110828, end: 20110904
  7. DICLOFENAC POTASSIUM [Concomitant]
     Active Substance: DICLOFENAC POTASSIUM
     Indication: Pain
     Dosage: UNK
     Route: 048
     Dates: start: 20110828, end: 20110904
  8. ACETYLCYSTEINE [Concomitant]
     Active Substance: ACETYLCYSTEINE
     Indication: Chronic obstructive pulmonary disease
     Dosage: UNK
     Route: 048
     Dates: start: 20110828, end: 20110904
  9. ACETYLCYSTEINE [Concomitant]
     Active Substance: ACETYLCYSTEINE
     Indication: Productive cough
     Dosage: UNK
     Route: 048
     Dates: start: 20170804, end: 20170808
  10. ACETYLCYSTEINE [Concomitant]
     Active Substance: ACETYLCYSTEINE
     Dosage: UNK
     Route: 048
     Dates: start: 20200710, end: 20200716
  11. LEVETIRACETAM [Concomitant]
     Active Substance: LEVETIRACETAM
     Indication: Epilepsy
     Dosage: UNK
     Route: 048
     Dates: start: 20141024
  12. CALCITRIOL [Concomitant]
     Active Substance: CALCITRIOL
     Indication: Osteoporosis
     Dosage: UNK
     Route: 048
     Dates: start: 20141129, end: 20141215
  13. CALCITRIOL [Concomitant]
     Active Substance: CALCITRIOL
     Dosage: UNK
     Route: 048
     Dates: start: 20170804, end: 20170922
  14. BROMHEXINE [Concomitant]
     Active Substance: BROMHEXINE
     Indication: Productive cough
     Dosage: UNK
     Route: 048
     Dates: start: 20110804, end: 20170810
  15. BROMHEXINE [Concomitant]
     Active Substance: BROMHEXINE
     Indication: Pneumonia
     Dosage: UNK
     Route: 048
     Dates: start: 20171218, end: 20171218
  16. BROMHEXINE [Concomitant]
     Active Substance: BROMHEXINE
     Dosage: UNK
     Route: 048
     Dates: start: 20180401, end: 20180407
  17. CLOSTRIDIUM BUTYRICUM SPORES STRAIN M-55 [Concomitant]
     Active Substance: CLOSTRIDIUM BUTYRICUM SPORES STRAIN M-55
     Indication: Gastrointestinal disorder
     Dosage: UNK
     Route: 048
     Dates: start: 20170804, end: 20170828
  18. CLONAZEPAM [Concomitant]
     Active Substance: CLONAZEPAM
     Indication: Epilepsy
     Dosage: UNK
     Route: 048
     Dates: start: 20170804, end: 20170817
  19. AUGMENTIN [Concomitant]
     Active Substance: AMOXICILLIN\CLAVULANATE POTASSIUM
     Indication: Pneumonia
     Dosage: UNK
     Route: 048
     Dates: start: 20170804, end: 20170810
  20. CARVEDILOL [Concomitant]
     Active Substance: CARVEDILOL
     Indication: Pneumonia
     Dosage: UNK
     Route: 048
     Dates: start: 20170804, end: 20170810
  21. ACETAMINOPHEN [Concomitant]
     Active Substance: ACETAMINOPHEN
     Indication: Pneumonia
     Dosage: UNK
     Route: 048
     Dates: start: 20180401, end: 20180407
  22. GUAIFENESIN [Concomitant]
     Active Substance: GUAIFENESIN
     Indication: Pneumonia
     Dosage: UNK
     Route: 048
     Dates: start: 20180401, end: 20180407
  23. IBUPROFEN [Concomitant]
     Active Substance: IBUPROFEN
     Indication: Pneumonia
     Dosage: UNK
     Route: 048
     Dates: start: 20180401, end: 20180407
  24. LACTOBACILLUS CASEI [Concomitant]
     Active Substance: LACTOBACILLUS CASEI
     Indication: Probiotic therapy
     Dosage: UNK
     Route: 048
     Dates: start: 20200710

REACTIONS (2)
  - Adenoidal disorder [Recovered/Resolved]
  - Otitis media [Recovered/Resolved]

NARRATIVE: CASE EVENT DATE: 20110824
